FAERS Safety Report 5993756-8 (Version None)
Quarter: 2008Q4

REPORT INFORMATION
  Report Type: 
  Country: None (occurrence: None)
  Receive Date: 20081212
  Receipt Date: 20081204
  Transmission Date: 20090506
  Serious: Yes (Hospitalization)
  Sender: FDA-Public Use
  Company Number: GB-ASTRAZENECA-2008GB02271

PATIENT
  Age: 83 Year
  Sex: Female

DRUGS (11)
  1. OMEPRAZOLE [Suspect]
     Indication: GASTRIC ULCER
     Route: 048
     Dates: start: 20070815
  2. MIRTAZAPINE [Suspect]
     Indication: DEPRESSION
     Route: 048
     Dates: start: 20080613, end: 20080914
  3. BETAHISTINE [Concomitant]
  4. CALCICHEW D3 [Concomitant]
  5. ACETAMINOPHEN W/ CODEINE [Concomitant]
     Route: 048
  6. COD LIVER OIL [Concomitant]
  7. CONOTRANE [Concomitant]
     Route: 061
  8. EVENING PRIMROSE OIL [Concomitant]
  9. FERROUS SULFATE TAB [Concomitant]
  10. GAVISCON [Concomitant]
  11. SIMVASTATIN [Concomitant]

REACTIONS (5)
  - CONVULSION [None]
  - FLUID INTAKE RESTRICTION [None]
  - FLUID RETENTION [None]
  - HEADACHE [None]
  - HYPONATRAEMIA [None]
